FAERS Safety Report 8462578-0 (Version None)
Quarter: 2012Q2

REPORT INFORMATION
  Report Type: 
  Country: None (occurrence: None)
  Receive Date: 20120625
  Receipt Date: 20120504
  Transmission Date: 20120825
  Serious: No
  Sender: FDA-Public Use
  Company Number: US-BAUSCH-2012BL001625

PATIENT
  Age: 27 Year
  Sex: Male

DRUGS (6)
  1. BESIVANCE [Suspect]
     Indication: POSTOPERATIVE CARE
     Route: 047
     Dates: start: 20121229, end: 20121229
  2. BESIVANCE [Suspect]
     Indication: OFF LABEL USE
     Route: 047
     Dates: start: 20121229, end: 20121229
  3. BESIVANCE [Suspect]
     Route: 047
     Dates: start: 20121201, end: 20121201
  4. BROMFENAC [Concomitant]
     Indication: PHOTOREFRACTIVE KERATECTOMY
     Route: 047
     Dates: start: 20111229, end: 20111229
  5. BESIVANCE [Suspect]
     Route: 047
     Dates: start: 20121201, end: 20121201
  6. PRED FORTE [Concomitant]
     Indication: PHOTOREFRACTIVE KERATECTOMY
     Route: 047
     Dates: start: 20111229, end: 20111229

REACTIONS (3)
  - CORNEAL DISORDER [None]
  - CORNEAL OPACITY [None]
  - IMPAIRED HEALING [None]
